FAERS Safety Report 8458966-9 (Version None)
Quarter: 2012Q2

REPORT INFORMATION
  Report Type: 
  Country: None (occurrence: None)
  Receive Date: 20120622
  Receipt Date: 20120619
  Transmission Date: 20120825
  Serious: Yes (Death, Other)
  Sender: FDA-Public Use
  Company Number: GR-AMGEN-GRCSP2011062245

PATIENT
  Age: 74 Year
  Sex: Male

DRUGS (2)
  1. PROLIA [Suspect]
     Indication: METASTASES TO BONE
  2. PROLIA [Suspect]
     Indication: PROSTATE CANCER METASTATIC
     Dosage: 30 MG, QMO
     Dates: start: 20110901, end: 20120201

REACTIONS (3)
  - HEPATIC CIRRHOSIS [None]
  - BLOOD CALCIUM DECREASED [None]
  - PROSTATE CANCER [None]
